FAERS Safety Report 23545731 (Version 1)
Quarter: 2024Q1

REPORT INFORMATION
  Report Type: Spontaneous
  Country: US (occurrence: None)
  Receive Date: 20240218
  Receipt Date: 20240218
  Transmission Date: 20240409
  Serious: Yes (Other)
  Sender: FDA-Public Use
  Company Number: None

PATIENT
  Age: 58 Year
  Sex: Female
  Weight: 81 kg

DRUGS (14)
  1. SEMAGLUTIDE [Suspect]
     Active Substance: SEMAGLUTIDE
     Indication: Glucose tolerance impaired
     Dosage: OTHER QUANTITY : 1 INJECTION(S);?OTHER FREQUENCY : ONCE A WEEK;?
     Route: 058
     Dates: start: 20231117, end: 20240214
  2. SEMAGLUTIDE [Suspect]
     Active Substance: SEMAGLUTIDE
     Indication: Obesity
  3. ADVAIR HFA [Concomitant]
     Active Substance: FLUTICASONE PROPIONATE\SALMETEROL XINAFOATE
  4. sinngulair [Concomitant]
  5. EDARBI [Concomitant]
     Active Substance: AZILSARTAN KAMEDOXOMIL
  6. srinolactone [Concomitant]
  7. Verapamil 360 [Concomitant]
  8. FOLIC ACID [Concomitant]
     Active Substance: FOLIC ACID
  9. METHOTREXATE [Concomitant]
     Active Substance: METHOTREXATE
  10. HUMIRA [Concomitant]
     Active Substance: ADALIMUMAB
  11. FLUOXETINE [Concomitant]
     Active Substance: FLUOXETINE HYDROCHLORIDE
  12. ALLEGRA [Concomitant]
     Active Substance: FEXOFENADINE HYDROCHLORIDE
  13. FLONASE [Concomitant]
     Active Substance: FLUTICASONE PROPIONATE
  14. CALCIUM CITRATE [Concomitant]
     Active Substance: CALCIUM CITRATE

REACTIONS (2)
  - Diarrhoea [None]
  - Therapeutic product effect delayed [None]

NARRATIVE: CASE EVENT DATE: 20240215
